FAERS Safety Report 7700890-0 (Version None)
Quarter: 2011Q3

REPORT INFORMATION
  Report Type: 
  Country: None (occurrence: None)
  Receive Date: 20110822
  Receipt Date: 20110817
  Transmission Date: 20111222
  Serious: Yes (Death, Hospitalization, Other)
  Sender: FDA-Public Use
  Company Number: PHHY2011BR74013

PATIENT
  Sex: Male

DRUGS (4)
  1. SUSTRATE [Concomitant]
     Indication: CHEST PAIN
     Route: 048
     Dates: start: 20070501
  2. SOMALGIN [Concomitant]
     Indication: CARDIAC DISORDER
     Route: 048
     Dates: start: 20070101
  3. ANCORON [Concomitant]
     Indication: CARDIAC DISORDER
     Route: 048
     Dates: start: 20070101
  4. DIOVAN [Suspect]
     Indication: HYPERTENSION
     Dosage: 2 TABLETS A DAY
     Route: 048

REACTIONS (2)
  - PNEUMOTHORAX [None]
  - INFECTION [None]
